FAERS Safety Report 5011149-7 (Version None)
Quarter: 2006Q2

REPORT INFORMATION
  Report Type: 
  Country: None (occurrence: None)
  Receive Date: 20060523
  Receipt Date: 20060511
  Transmission Date: 20061013
  Serious: Yes (Other)
  Sender: FDA-Public Use
  Company Number: 2006035751

PATIENT
  Age: 14 Year
  Sex: Female

DRUGS (1)
  1. DEXTROMETHORPHAN HYDROBROMIDE [Suspect]
     Dosage: MORE THAN 10, 10 MG TABLETS, ONCE, ORAL
     Route: 048
     Dates: start: 20051208, end: 20051208

REACTIONS (9)
  - AGITATION [None]
  - BODY TEMPERATURE DECREASED [None]
  - CONFUSIONAL STATE [None]
  - DRUG ABUSER [None]
  - DYSARTHRIA [None]
  - HEART RATE INCREASED [None]
  - INCORRECT DOSE ADMINISTERED [None]
  - RESPIRATORY RATE INCREASED [None]
  - SOMNOLENCE [None]
